FAERS Safety Report 14262510 (Version 3)
Quarter: 2017Q4

REPORT INFORMATION
  Report Type: Spontaneous
  Country: IR (occurrence: IR)
  Receive Date: 20171208
  Receipt Date: 20171218
  Transmission Date: 20180321
  Serious: Yes (Hospitalization, Other)
  Sender: FDA-Public Use
  Company Number: IR-ABBVIE-17P-080-2186852-00

PATIENT
  Age: 34 Year
  Sex: Male

DRUGS (11)
  1. QUETIAPINE FUMARATE. [Suspect]
     Active Substance: QUETIAPINE FUMARATE
     Indication: IRRITABILITY
     Route: 065
  2. QUETIAPINE FUMARATE. [Suspect]
     Active Substance: QUETIAPINE FUMARATE
     Indication: TACHYPHRENIA
     Route: 065
  3. PERPHENAZINE. [Suspect]
     Active Substance: PERPHENAZINE
     Indication: BIPOLAR DISORDER
     Route: 065
  4. SODIUM VALPROATE [Suspect]
     Active Substance: VALPROATE SODIUM
     Route: 065
  5. QUETIAPINE FUMARATE. [Suspect]
     Active Substance: QUETIAPINE FUMARATE
     Indication: JEALOUS DELUSION
     Route: 065
  6. PERPHENAZINE. [Suspect]
     Active Substance: PERPHENAZINE
     Route: 065
  7. SODIUM VALPROATE [Suspect]
     Active Substance: VALPROATE SODIUM
     Indication: BIPOLAR DISORDER
     Route: 065
  8. LITHIUM. [Suspect]
     Active Substance: LITHIUM
     Indication: BIPOLAR DISORDER
     Route: 065
  9. QUETIAPINE FUMARATE. [Suspect]
     Active Substance: QUETIAPINE FUMARATE
     Indication: BIPOLAR DISORDER
     Route: 065
  10. PERPHENAZINE. [Suspect]
     Active Substance: PERPHENAZINE
     Route: 065
  11. BIPERIDEN [Suspect]
     Active Substance: BIPERIDEN
     Indication: BIPOLAR DISORDER
     Route: 065

REACTIONS (10)
  - Irritability [Unknown]
  - Jealous delusion [Unknown]
  - Lethargy [Unknown]
  - Urinary incontinence [Unknown]
  - Condition aggravated [Unknown]
  - Blood creatinine increased [Unknown]
  - Renal failure [Unknown]
  - Tachyphrenia [Unknown]
  - Sedation [Unknown]
  - Enuresis [Unknown]
